FAERS Safety Report 20338826 (Version 1)
Quarter: 2022Q1

REPORT INFORMATION
  Report Type: Spontaneous
  Country: US (occurrence: US)
  Receive Date: 20220116
  Receipt Date: 20220116
  Transmission Date: 20220423
  Serious: No
  Sender: FDA-Public Use
  Company Number: US-BEH-2022140565

PATIENT
  Age: 69 Year
  Sex: Male

DRUGS (2)
  1. PRIVIGEN [Suspect]
     Active Substance: HUMAN IMMUNOGLOBULIN G
     Indication: Infection
     Dosage: 50 GRAM
     Route: 042
     Dates: start: 20211231, end: 20211231
  2. PRIVIGEN [Suspect]
     Active Substance: HUMAN IMMUNOGLOBULIN G
     Dosage: UNK
     Route: 042
     Dates: start: 20211231, end: 20211231

REACTIONS (4)
  - Pruritus [Recovered/Resolved]
  - Urticaria [Recovered/Resolved]
  - No adverse event [Unknown]
  - Off label use [Unknown]

NARRATIVE: CASE EVENT DATE: 20211231
